FAERS Safety Report 17258722 (Version 1)
Quarter: 2020Q1

REPORT INFORMATION
  Report Type: Spontaneous
  Country: BR (occurrence: BR)
  Receive Date: 20200110
  Receipt Date: 20200110
  Transmission Date: 20200409
  Serious: Yes (Life-Threatening)
  Sender: FDA-Public Use
  Company Number: BR-GALDERMA-BR2020001392

PATIENT
  Sex: Female

DRUGS (1)
  1. EPIDUO [Suspect]
     Active Substance: ADAPALENE\BENZOYL PEROXIDE
     Indication: ACNE
     Dosage: 0.1%/2.5%
     Route: 061
     Dates: start: 20200104, end: 20200105

REACTIONS (6)
  - Throat tightness [Unknown]
  - Application site erythema [Unknown]
  - Dyspnoea [Unknown]
  - Hypersensitivity [Unknown]
  - Application site swelling [Unknown]
  - Paraesthesia [Unknown]

NARRATIVE: CASE EVENT DATE: 20200105
